APPROVED DRUG PRODUCT: OXCARBAZEPINE
Active Ingredient: OXCARBAZEPINE
Strength: 300MG
Dosage Form/Route: TABLET;ORAL
Application: A077801 | Product #002 | TE Code: AB
Applicant: TARO PHARMACEUTICAL INDUSTRIES LTD
Approved: Nov 15, 2007 | RLD: No | RS: No | Type: RX